FAERS Safety Report 10184240 (Version 1)
Quarter: 2014Q2

REPORT INFORMATION
  Report Type: Spontaneous
  Country: US (occurrence: US)
  Receive Date: 20140520
  Receipt Date: 20140520
  Transmission Date: 20141212
  Serious: No
  Sender: FDA-Public Use
  Company Number: US-ASTRAZENECA-2014SE13253

PATIENT
  Sex: Male

DRUGS (2)
  1. RHINOCORT AQUA [Suspect]
     Indication: CHRONIC SINUSITIS
     Dosage: 1 SPRAY EACH NOSTRIL BID
     Route: 045
  2. RHINOCORT AQUA [Suspect]
     Indication: RHINITIS
     Dosage: 1 SPRAY EACH NOSTRIL BID
     Route: 045

REACTIONS (2)
  - Sinus congestion [Recovered/Resolved]
  - Nasal congestion [Unknown]
